FAERS Safety Report 5678862-X (Version None)
Quarter: 2008Q1

REPORT INFORMATION
  Report Type: 
  Country: None (occurrence: None)
  Receive Date: 20080320
  Receipt Date: 20080220
  Transmission Date: 20080703
  Serious: Yes (Hospitalization)
  Sender: FDA-Public Use
  Company Number: 2008S1002884

PATIENT
  Age: 41 Year
  Sex: Female

DRUGS (1)
  1. BACLOFEN [Suspect]
     Dosage: 200 MG; ONCE ORAL, 200 MG; ORAL; ONCE
     Route: 048

REACTIONS (5)
  - COMA [None]
  - CONVULSION [None]
  - HYPERTENSION [None]
  - OVERDOSE [None]
  - TACHYCARDIA [None]
